FAERS Safety Report 22053225 (Version 1)
Quarter: 2023Q1

REPORT INFORMATION
  Report Type: Other
  Country: None (occurrence: US)
  Receive Date: 20230302
  Receipt Date: 20230302
  Transmission Date: 20230417
  Serious: Yes (Other)
  Sender: FDA-Public Use
  Company Number: US-ACI HealthCare Limited-2138629

PATIENT
  Age: 16 Year
  Sex: Male

DRUGS (1)
  1. SERTRALINE HYDROCHLORIDE [Suspect]
     Active Substance: SERTRALINE HYDROCHLORIDE
     Indication: Generalised anxiety disorder
     Route: 065

REACTIONS (3)
  - Urinary retention [Recovered/Resolved]
  - Anxiety [Recovered/Resolved]
  - Rebound effect [Recovered/Resolved]
